FAERS Safety Report 23686549 (Version 1)
Quarter: 2024Q1

REPORT INFORMATION
  Report Type: Spontaneous
  Country: US (occurrence: None)
  Receive Date: 20240328
  Receipt Date: 20240328
  Transmission Date: 20240410
  Serious: Yes (Other)
  Sender: FDA-Public Use
  Company Number: None

PATIENT
  Age: 52 Year
  Sex: Female
  Weight: 58.97 kg

DRUGS (3)
  1. AUBAGIO [Suspect]
     Active Substance: TERIFLUNOMIDE
     Indication: Multiple sclerosis
     Dosage: FREQUENCY : DAILY;?
     Route: 048
     Dates: start: 20230430
  2. AZATHIOPRINE [Concomitant]
  3. albuterol [Concomitant]

REACTIONS (3)
  - Abdominal pain [None]
  - Chromaturia [None]
  - Therapy interrupted [None]

NARRATIVE: CASE EVENT DATE: 20240328
